FAERS Safety Report 22390194 (Version 1)
Quarter: 2023Q2

REPORT INFORMATION
  Report Type: Spontaneous
  Country: US (occurrence: US)
  Receive Date: 20230531
  Receipt Date: 20230531
  Transmission Date: 20230722
  Serious: No
  Sender: FDA-Public Use
  Company Number: US-PFIZER INC-202300026790

PATIENT
  Age: 30 Year
  Sex: Female

DRUGS (3)
  1. XELJANZ XR [Suspect]
     Active Substance: TOFACITINIB CITRATE
     Dosage: 11 MG
     Route: 048
     Dates: start: 20221221
  2. METHOTREXATE [Concomitant]
     Active Substance: METHOTREXATE
  3. CYTOMEL [Concomitant]
     Active Substance: LIOTHYRONINE SODIUM

REACTIONS (1)
  - Drug ineffective [Unknown]
